FAERS Safety Report 4482241-0 (Version None)
Quarter: 2004Q4

REPORT INFORMATION
  Report Type: 
  Country: None (occurrence: None)
  Receive Date: 20041020
  Receipt Date: 20041005
  Transmission Date: 20050328
  Serious: Yes (Other)
  Sender: FDA-Public Use
  Company Number: USA040875970

PATIENT
  Age: 65 Year
  Sex: Female

DRUGS (2)
  1. EVISTA [Suspect]
     Dosage: 60 MG DAY
     Dates: start: 20040401
  2. WELLBUTRIN [Concomitant]

REACTIONS (1)
  - SARCOIDOSIS [None]
